FAERS Safety Report 5562398-0 (Version None)
Quarter: 2007Q4

REPORT INFORMATION
  Report Type: 
  Country: None (occurrence: None)
  Receive Date: 20071215
  Receipt Date: 20070611
  Transmission Date: 20080405
  Serious: No
  Sender: FDA-Public Use
  Company Number: US-AMGEN-US228710

PATIENT
  Sex: Male
  Weight: 65.8 kg

DRUGS (3)
  1. ARANESP [Suspect]
     Indication: ANAEMIA
     Route: 065
     Dates: start: 20070201
  2. PROCRIT [Suspect]
     Indication: ANAEMIA
     Route: 065
     Dates: start: 20061218, end: 20070201
  3. ASPIRIN [Concomitant]

REACTIONS (4)
  - CONFUSIONAL STATE [None]
  - FATIGUE [None]
  - HYPOTENSION [None]
  - MEMORY IMPAIRMENT [None]
